FAERS Safety Report 23370172 (Version 2)
Quarter: 2024Q1

REPORT INFORMATION
  Report Type: Spontaneous
  Country: JP (occurrence: JP)
  Receive Date: 20240105
  Receipt Date: 20240109
  Transmission Date: 20240410
  Serious: Yes (Hospitalization, Other)
  Sender: FDA-Public Use
  Company Number: JP-MLMSERVICE-20231222-4740355-1

PATIENT
  Age: 72 Year
  Sex: Male

DRUGS (4)
  1. METHYLPREDNISOLONE SODIUM SUCCINATE [Suspect]
     Active Substance: METHYLPREDNISOLONE SODIUM SUCCINATE
     Indication: Hashimoto^s encephalopathy
     Dosage: 1 G, 1X/DAY, FOR 3 DAYS (HIGH-DOSE ON DAY 13 OF HOSPITALIZATION)
     Route: 042
  2. METHYLPREDNISOLONE SODIUM SUCCINATE [Suspect]
     Active Substance: METHYLPREDNISOLONE SODIUM SUCCINATE
     Dosage: STARTED A SECOND COURSE ON DAY 33 (HIGH-DOSE)
     Route: 042
  3. PREDNISOLONE [Suspect]
     Active Substance: PREDNISOLONE
     Indication: Hashimoto^s encephalopathy
     Dosage: 50 MG, 1X/DAY, (1 MG/KG/DAY FOR 1 MONTH)
     Route: 048
  4. PREDNISOLONE [Suspect]
     Active Substance: PREDNISOLONE
     Dosage: 5 MG, 2X/WEEK
     Route: 048

REACTIONS (5)
  - Psychiatric symptom [Recovered/Resolved]
  - Condition aggravated [Recovered/Resolved]
  - Irritability [Recovered/Resolved]
  - Aggression [Recovered/Resolved]
  - Off label use [Unknown]
